FAERS Safety Report 8347741-1 (Version None)
Quarter: 2012Q2

REPORT INFORMATION
  Report Type: 
  Country: None (occurrence: None)
  Receive Date: 20120509
  Receipt Date: 20120507
  Transmission Date: 20120825
  Serious: Yes (Death, Other)
  Sender: FDA-Public Use
  Company Number: US-CELGENEUS-163-21880-11123205

PATIENT
  Sex: Male

DRUGS (15)
  1. STOOL SOFTENER [Concomitant]
     Dosage: 240 MILLIGRAM
     Route: 065
  2. VALACYCLOVIR HYDROCHLORIDE [Concomitant]
     Dosage: 500 MILLIGRAM
     Route: 065
  3. XANAX [Concomitant]
     Indication: ANXIETY
     Dosage: 1 MILLIGRAM
     Route: 065
  4. RESTORIL [Concomitant]
     Indication: INSOMNIA
     Dosage: 30 MILLIGRAM
     Route: 048
     Dates: end: 20111218
  5. ATIVAN [Concomitant]
     Dosage: 1 MILLIGRAM
     Route: 065
  6. DILAUDID [Concomitant]
     Dosage: 50 MILLIGRAM
     Route: 041
     Dates: end: 20101218
  7. DIFLUCAN [Concomitant]
     Dosage: 200 MILLIGRAM
     Route: 065
  8. XANAX [Concomitant]
     Dosage: .5 MILLIGRAM
     Route: 065
     Dates: end: 20111218
  9. PHENERGAN [Concomitant]
     Dosage: 25 MILLIGRAM
     Route: 065
  10. POTASSIUM CHLORIDE [Concomitant]
     Dosage: 40 MILLIGRAM
     Route: 048
     Dates: end: 20111218
  11. DILANTIN [Concomitant]
     Dosage: 30 MILLIGRAM
     Route: 065
  12. DILAUDID [Concomitant]
     Indication: PAIN
     Dosage: 2 MILLIGRAM
     Route: 065
  13. EFFEXOR [Concomitant]
     Dosage: 50 MILLIGRAM
     Route: 065
  14. REVLIMID [Suspect]
     Dosage: 25 MILLIGRAM
     Route: 048
     Dates: start: 20111201, end: 20111215
  15. ZOFRAN [Concomitant]
     Indication: NAUSEA
     Dosage: 8 MILLIGRAM
     Route: 065
     Dates: end: 20111218

REACTIONS (3)
  - CONVULSION [None]
  - THROMBOCYTOPENIA [None]
  - MENTAL STATUS CHANGES [None]
